FAERS Safety Report 4578746-4 (Version None)
Quarter: 2005Q1

REPORT INFORMATION
  Report Type: 
  Country: None (occurrence: None)
  Receive Date: 20050211
  Receipt Date: 20040705
  Transmission Date: 20050727
  Serious: Yes (Hospitalization)
  Sender: FDA-Public Use
  Company Number: 2004012406

PATIENT
  Age: 33 Year
  Sex: Female
  Weight: 80 kg

DRUGS (3)
  1. LAMICTAL [Suspect]
     Dosage: 1000MG SINGLE DOSE
     Route: 048
     Dates: start: 20050207, end: 20050207
  2. LAMICTAL [Suspect]
     Dosage: 20TAB SINGLE DOSE
     Route: 048
     Dates: start: 20040703, end: 20040703
  3. BUXUS SEMPERVIRENS [Suspect]
     Dosage: 2UNIT SINGLE DOSE
     Route: 048
     Dates: start: 20040703, end: 20040703

REACTIONS (8)
  - AGITATION [None]
  - BALANCE DISORDER [None]
  - INTENTIONAL MISUSE [None]
  - NYSTAGMUS [None]
  - SOMNOLENCE [None]
  - SUICIDE ATTEMPT [None]
  - TACHYCARDIA [None]
  - VOMITING [None]
